FAERS Safety Report 5674477-8 (Version None)
Quarter: 2008Q2

REPORT INFORMATION
  Report Type: 
  Country: None (occurrence: None)
  Receive Date: 20080303
  Receipt Date: 20070404
  Transmission Date: 20081010
  Serious: Yes (Hospitalization)
  Sender: FDA-Public Use
  Company Number: MK-6031918

PATIENT
  Age: 18 Year
  Sex: Male

DRUGS (1)
  1. AMNESTEEM [Suspect]
     Indication: ACNE
     Dates: start: 20060919, end: 20070214

REACTIONS (2)
  - INFECTIOUS MONONUCLEOSIS [None]
  - LIVER FUNCTION TEST ABNORMAL [None]
